FAERS Safety Report 5037263-8 (Version None)
Quarter: 2006Q2

REPORT INFORMATION
  Report Type: 
  Country: None (occurrence: None)
  Receive Date: 20060628
  Receipt Date: 20060517
  Transmission Date: 20061013
  Serious: Yes (Other)
  Sender: FDA-Public Use
  Company Number: GB-ROCHE-449077

PATIENT
  Sex: Male
  Weight: 112 kg

DRUGS (4)
  1. XENICAL [Suspect]
     Indication: OBESITY
     Route: 048
     Dates: start: 20051007
  2. AZATHIOPRINE [Suspect]
     Route: 065
  3. AZATHIOPRINE [Suspect]
     Route: 065
  4. PREDNISOLONE [Concomitant]

REACTIONS (4)
  - COLITIS ULCERATIVE [None]
  - DYSPNOEA [None]
  - FATIGUE [None]
  - LIVER FUNCTION TEST ABNORMAL [None]
